FAERS Safety Report 9026547 (Version 2)
Quarter: 2013Q1

REPORT INFORMATION
  Report Type: Spontaneous
  Country: TR (occurrence: None)
  Receive Date: 20130103
  Receipt Date: 20130108
  Transmission Date: 20140127
  Serious: Yes (Other)
  Sender: FDA-Public Use
  Company Number: 2013SP000020

PATIENT
  Age: 48 Year
  Sex: Male

DRUGS (6)
  1. FLUOROURACIL [Suspect]
     Indication: METASTATIC GASTRIC CANCER
     Route: 040
  2. IRINOTECAN [Concomitant]
  3. FOLINIC ACID [Concomitant]
  4. CISPLATIN [Concomitant]
  5. FLUOROURACIL [Concomitant]
  6. DOCETAXEL [Concomitant]

REACTIONS (2)
  - Stress cardiomyopathy [None]
  - Cardiac failure [None]
